FAERS Safety Report 8212717-1 (Version None)
Quarter: 2012Q1

REPORT INFORMATION
  Report Type: 
  Country: None (occurrence: None)
  Receive Date: 20120228
  Receipt Date: 20111109
  Transmission Date: 20120608
  Serious: Yes (Other)
  Sender: FDA-Public Use
  Company Number: RB-34154-2011

PATIENT
  Sex: Male
  Weight: 3.3 kg

DRUGS (5)
  1. NEURONTIN [Suspect]
     Indication: NEUROPATHY PERIPHERAL
     Dosage: (600 MG BID TRANSPLACENTAL)
     Route: 064
     Dates: end: 20110927
  2. XANAX [Suspect]
     Indication: ANXIETY
     Dosage: (2 MG TID TRANSPLACENTAL)
     Route: 064
     Dates: end: 20110927
  3. SUBOXONE [Suspect]
     Indication: PRODUCT USED FOR UNKNOWN INDICATION
     Dosage: (DOSING INFORMATION UNKNOWN TRANSPLACENTAL)
     Route: 064
     Dates: end: 20110927
  4. PROGESTERONE [Suspect]
     Indication: SHORTENED CERVIX
     Dosage: (DOSING DETAILS UNKNOWN TRANSPLACENTAL)
     Route: 064
     Dates: end: 20110927
  5. MULTI-VITAMINS [Concomitant]

REACTIONS (2)
  - FOETAL EXPOSURE DURING PREGNANCY [None]
  - DRUG WITHDRAWAL SYNDROME NEONATAL [None]
